FAERS Safety Report 8835875 (Version 1)
Quarter: 2012Q4

REPORT INFORMATION
  Report Type: 
  Country: US (occurrence: US)
  Receive Date: 20121011
  Receipt Date: 20121011
  Transmission Date: 20130627
  Serious: Yes (Hospitalization)
  Sender: FDA-Public Use
  Company Number: US-JNJFOC-20121004528

PATIENT
  Age: 48 Year
  Sex: Male

DRUGS (2)
  1. XARELTO [Suspect]
     Indication: TENDON OPERATION
     Route: 048
  2. NORCO [Concomitant]
     Indication: PROCEDURAL PAIN

REACTIONS (2)
  - Deep vein thrombosis [Unknown]
  - Drug dose omission [Recovered/Resolved]
